FAERS Safety Report 8295508-5 (Version None)
Quarter: 2012Q2

REPORT INFORMATION
  Report Type: 
  Country: None (occurrence: None)
  Receive Date: 20120413
  Receipt Date: 20120329
  Transmission Date: 20120825
  Serious: Yes (Hospitalization)
  Sender: FDA-Public Use
  Company Number: DSJ-2011-26893

PATIENT
  Age: 33 Year
  Sex: Female
  Weight: 51.8 kg

DRUGS (8)
  1. LASIX [Concomitant]
  2. GASTER (OMEPRAZOLE) [Concomitant]
  3. BIOFERMIN (LACTOBACILLUS ACIDOPHILUS, BACILLUS SUBTILIS, STREPROTOCCUS [Concomitant]
  4. KERLONE [Concomitant]
  5. OLMESARTAN MEDOXOMIL [Suspect]
     Indication: HYPERTENSION
     Dosage: UNKNOWN
     Dates: end: 20110418
  6. TRICHLORMETHIAZIDE [Concomitant]
  7. AMLODIPINE BESYLATE [Concomitant]
  8. RASILEZ (ALISKIREN) [Suspect]
     Indication: HYPERTENSION
     Dosage: UNKNOWN
     Dates: end: 20110418

REACTIONS (2)
  - RENAL FAILURE ACUTE [None]
  - DRUG ERUPTION [None]
